FAERS Safety Report 22287818 (Version 2)
Quarter: 2023Q2

REPORT INFORMATION
  Report Type: Spontaneous
  Country: US (occurrence: US)
  Receive Date: 20230505
  Receipt Date: 20230516
  Transmission Date: 20230722
  Serious: Yes (Life-Threatening, Hospitalization)
  Sender: FDA-Public Use
  Company Number: US-JNJFOC-20230508959

PATIENT
  Age: 83 Year
  Sex: Male
  Weight: 86 kg

DRUGS (3)
  1. XARELTO [Suspect]
     Active Substance: RIVAROXABAN
     Indication: Product used for unknown indication
     Route: 048
  2. SIMVASTATIN [Suspect]
     Active Substance: SIMVASTATIN
     Indication: Product used for unknown indication
     Route: 065
  3. PAXLOVID [Concomitant]
     Active Substance: NIRMATRELVIR\RITONAVIR
     Indication: COVID-19
     Dosage: 150/100 MG
     Route: 048
     Dates: start: 20230413, end: 20230417

REACTIONS (4)
  - Ischaemic stroke [Unknown]
  - Embolic stroke [Unknown]
  - Cerebral artery occlusion [Unknown]
  - COVID-19 [Unknown]

NARRATIVE: CASE EVENT DATE: 20230401
